FAERS Safety Report 9541740 (Version 1)
Quarter: 2013Q3

REPORT INFORMATION
  Report Type: Spontaneous
  Country: US (occurrence: None)
  Receive Date: 20130919
  Receipt Date: 20130919
  Transmission Date: 20140515
  Serious: Yes (Hospitalization)
  Sender: FDA-Public Use
  Company Number: None

PATIENT
  Age: 29 Year
  Sex: Male
  Weight: 70.7 kg

DRUGS (1)
  1. MOXIFLOXACIN [Suspect]
     Indication: URINARY TRACT INFECTION
     Dosage: 1 TAB ONCE PO
     Route: 048
     Dates: start: 20130526, end: 20130526

REACTIONS (5)
  - Fatigue [None]
  - Dyspnoea [None]
  - Dizziness [None]
  - Dizziness [None]
  - Hypoaesthesia [None]
